FAERS Safety Report 19507393 (Version 1)
Quarter: 2021Q3

REPORT INFORMATION
  Report Type: Spontaneous
  Country: DE (occurrence: DE)
  Receive Date: 20210708
  Receipt Date: 20210708
  Transmission Date: 20211014
  Serious: Yes (Hospitalization)
  Sender: FDA-Public Use
  Company Number: DE-TEVA-2021-DE-1929528

PATIENT
  Age: 62 Year
  Sex: Female
  Weight: 90 kg

DRUGS (9)
  1. IBEROGAST [Suspect]
     Active Substance: HERBALS
     Route: 065
  2. GRIPPOSTAD HEIGETRANK (CAFFEINE\DIPHENHYDRAMINE\HEXETYLAMINE\PROPYPHENAZONE\SALICYLAMIDE) [Suspect]
     Active Substance: CAFFEINE\DIPHENHYDRAMINE\HEXETYLAMINE\PROPYPHENAZONE\SALICYLAMIDE
     Route: 065
  3. COLECALCIFEROL (VITAMIN D) [Concomitant]
     Active Substance: CHOLECALCIFEROL
     Dosage: 20,000 IU, ACCORDING TO THE SCHEME,
     Route: 048
  4. TORASEMID [Suspect]
     Active Substance: TORSEMIDE
     Dosage: 5 MILLIGRAM DAILY;  1?0?0?0,
     Route: 048
  5. BIMATOPROST. [Concomitant]
     Active Substance: BIMATOPROST
     Dosage: 7.5 MICROGRAM DAILY;   0?0?1?0,DROPS
     Route: 047
  6. ATORVASTATIN [Concomitant]
     Active Substance: ATORVASTATIN
     Dosage: 10 MILLIGRAM DAILY;  0?0?0?1,
     Route: 048
  7. PANTOPRAZOL [Concomitant]
     Active Substance: PANTOPRAZOLE SODIUM
     Dosage: 40 MILLIGRAM DAILY;  1?0?0?0,
     Route: 048
  8. METAMIZOL [Suspect]
     Active Substance: METAMIZOLE SODIUM
     Dosage: 500 MG, AS NEEDED,
     Route: 048
  9. LEVOTHYROXIN?NATRIUM [Concomitant]
     Active Substance: LEVOTHYROXINE SODIUM
     Dosage: .5 DOSAGE FORMS DAILY; 112 UG, 0.5?0?0?0,
     Route: 048

REACTIONS (7)
  - Diarrhoea [Recovering/Resolving]
  - Chills [Recovering/Resolving]
  - Abdominal pain [Recovering/Resolving]
  - Dyspepsia [Recovering/Resolving]
  - Pain [Recovering/Resolving]
  - Pyrexia [Recovering/Resolving]
  - Sneezing [Recovering/Resolving]
